FAERS Safety Report 5823199-9 (Version None)
Quarter: 2008Q3

REPORT INFORMATION
  Report Type: 
  Country: None (occurrence: None)
  Receive Date: 20080725
  Receipt Date: 20080723
  Transmission Date: 20090109
  Serious: Yes (Death)
  Sender: FDA-Public Use
  Company Number: PHHY2008ID14640

PATIENT
  Age: 64 Year
  Sex: Female

DRUGS (1)
  1. VOLTAREN [Suspect]
     Indication: OSTEOARTHRITIS
     Dosage: 75 MG
     Route: 030
     Dates: start: 20080712

REACTIONS (5)
  - ABDOMINAL PAIN UPPER [None]
  - ANAPHYLACTIC SHOCK [None]
  - CHEST DISCOMFORT [None]
  - FALL [None]
  - MYOCARDIAL INFARCTION [None]
